FAERS Safety Report 24910771 (Version 1)
Quarter: 2025Q1

REPORT INFORMATION
  Report Type: Spontaneous
  Country: US (occurrence: None)
  Receive Date: 20250130
  Receipt Date: 20250130
  Transmission Date: 20250408
  Serious: Yes (Other)
  Sender: FDA-CTU
  Company Number: None

PATIENT
  Age: 75 Year
  Sex: Female
  Weight: 43.65 kg

DRUGS (7)
  1. PROLIA [Suspect]
     Active Substance: DENOSUMAB
     Indication: Osteoporosis
     Route: 050
     Dates: start: 20221011, end: 20240411
  2. ALENDRONATE [Concomitant]
     Active Substance: ALENDRONATE SODIUM
  3. SYNTHROID [Concomitant]
     Active Substance: LEVOTHYROXINE SODIUM
  4. LOSARTAN [Concomitant]
     Active Substance: LOSARTAN
  5. ATENOLOL [Concomitant]
     Active Substance: ATENOLOL
  6. VITAMIN D3 [Concomitant]
     Active Substance: CHOLECALCIFEROL
  7. PEPCID [Concomitant]
     Active Substance: FAMOTIDINE

REACTIONS (6)
  - Urinary tract infection [None]
  - Herpes zoster oticus [None]
  - Gingival cyst [None]
  - Pain in jaw [None]
  - Opportunistic infection [None]
  - Immune system disorder [None]

NARRATIVE: CASE EVENT DATE: 20240411
